FAERS Safety Report 17432555 (Version 1)
Quarter: 2020Q1

REPORT INFORMATION
  Report Type: Spontaneous
  Country: CO (occurrence: CO)
  Receive Date: 20200218
  Receipt Date: 20200218
  Transmission Date: 20200409
  Serious: Yes (Life-Threatening)
  Sender: FDA-Public Use
  Company Number: CO-AMGEN-COLSP2020000687

PATIENT
  Age: 11 Year
  Sex: Female
  Weight: 32 kg

DRUGS (3)
  1. NEULASTA [Suspect]
     Active Substance: PEGFILGRASTIM
     Indication: NEUTROPENIA
     Dosage: 3 MILLIGRAM (SINGLE DOSE)
     Route: 058
     Dates: start: 20191205
  2. CLOFARABINE. [Concomitant]
     Active Substance: CLOFARABINE
     Dosage: 40 MILLIGRAM, QD (EACH 24 HOURS)
     Dates: start: 20191202, end: 20191204
  3. ETOPOSIDE. [Concomitant]
     Active Substance: ETOPOSIDE
     Dosage: 400 MILLIGRAM AND 150 MILLIGRAM, CYCLICAL (C/24H)
     Dates: start: 20191202, end: 20191204

REACTIONS (2)
  - Chest pain [Recovered/Resolved]
  - Dyspnoea [Recovered/Resolved]

NARRATIVE: CASE EVENT DATE: 20191205
